FAERS Safety Report 16269782 (Version 3)
Quarter: 2021Q1

REPORT INFORMATION
  Report Type: Spontaneous
  Country: US (occurrence: US)
  Receive Date: 20190503
  Receipt Date: 20210121
  Transmission Date: 20210419
  Serious: No
  Sender: FDA-Public Use
  Company Number: US-PFIZER INC-2018467892

PATIENT
  Age: 49 Year
  Sex: Female
  Weight: 108.8 kg

DRUGS (4)
  1. GABAPENTIN. [Suspect]
     Active Substance: GABAPENTIN
     Dosage: UNK
  2. LYRICA [Suspect]
     Active Substance: PREGABALIN
     Indication: PHYSICAL EXAMINATION
     Dosage: 50 MG, 3X/DAY (1 CAPSULE BY MOUTH 3 TIMES DAY)
     Route: 048
     Dates: start: 20181010
  3. LYRICA [Suspect]
     Active Substance: PREGABALIN
     Indication: FIBROMYALGIA
     Dosage: 150 MG, 2X/DAY
     Route: 048
  4. LYRICA [Suspect]
     Active Substance: PREGABALIN
     Dosage: 100 MG, 3X/DAY (TAKE 1 (ONE) CAPSULE BY MOUTH THREE TIMES DAILY)
     Route: 048

REACTIONS (1)
  - Illness [Recovering/Resolving]
